FAERS Safety Report 23351475 (Version 1)
Quarter: 2023Q4

REPORT INFORMATION
  Report Type: Spontaneous
  Country: US (occurrence: US)
  Receive Date: 20231229
  Receipt Date: 20231229
  Transmission Date: 20240110
  Serious: Yes (Hospitalization)
  Sender: FDA-Public Use
  Company Number: US-Vifor (International) Inc.-VIT-2023-10484

PATIENT
  Age: 81 Year
  Sex: Female
  Weight: 49 kg

DRUGS (3)
  1. MIRCERA [Suspect]
     Active Substance: METHOXY POLYETHYLENE GLYCOL-EPOETIN BETA
     Indication: Nephrogenic anaemia
     Dosage: FIRST AND SECOND DOSE
     Route: 040
     Dates: start: 20231111, end: 20231118
  2. MIRCERA [Suspect]
     Active Substance: METHOXY POLYETHYLENE GLYCOL-EPOETIN BETA
     Dosage: THIRD DOSE
     Route: 040
     Dates: start: 20231202, end: 20231202
  3. MIRCERA [Suspect]
     Active Substance: METHOXY POLYETHYLENE GLYCOL-EPOETIN BETA
     Dosage: 4TH DOSE. IVP
     Route: 040
     Dates: start: 20231216, end: 20231216

REACTIONS (5)
  - Drug hypersensitivity [Recovered/Resolved]
  - Loss of consciousness [Recovered/Resolved]
  - Blood pressure increased [Recovered/Resolved]
  - Somnolence [Unknown]
  - Vomiting [Unknown]

NARRATIVE: CASE EVENT DATE: 20231202
